FAERS Safety Report 24899766 (Version 2)
Quarter: 2025Q1

REPORT INFORMATION
  Report Type: Spontaneous
  Country: US (occurrence: US)
  Receive Date: 20250129
  Receipt Date: 20250318
  Transmission Date: 20250408
  Serious: Yes (Hospitalization, Other)
  Sender: JOHNSON AND JOHNSON
  Company Number: US-JNJFOC-20250151676

PATIENT

DRUGS (4)
  1. TECVAYLI [Suspect]
     Active Substance: TECLISTAMAB-CQYV
     Indication: Plasma cell myeloma
     Dates: start: 202405
  2. TECVAYLI [Suspect]
     Active Substance: TECLISTAMAB-CQYV
  3. TECVAYLI [Suspect]
     Active Substance: TECLISTAMAB-CQYV
  4. TECVAYLI [Suspect]
     Active Substance: TECLISTAMAB-CQYV

REACTIONS (2)
  - Cytokine release syndrome [Recovered/Resolved]
  - Immune effector cell-associated neurotoxicity syndrome [Unknown]
